FAERS Safety Report 25250677 (Version 1)
Quarter: 2025Q2

REPORT INFORMATION
  Report Type: Spontaneous
  Country: RU (occurrence: RU)
  Receive Date: 20250429
  Receipt Date: 20250429
  Transmission Date: 20250716
  Serious: Yes (Other)
  Sender: ORGANON
  Company Number: RU-ORGANON-O2504RUS002559

PATIENT
  Age: 32 Year
  Sex: Female

DRUGS (1)
  1. ETONOGESTREL [Suspect]
     Active Substance: ETONOGESTREL
     Route: 059
     Dates: start: 202401, end: 202407

REACTIONS (1)
  - Bloody discharge [Unknown]

NARRATIVE: CASE EVENT DATE: 20240101
